FAERS Safety Report 23034568 (Version 1)
Quarter: 2023Q4

REPORT INFORMATION
  Report Type: Spontaneous
  Country: TR (occurrence: TR)
  Receive Date: 20231005
  Receipt Date: 20231005
  Transmission Date: 20240110
  Serious: Yes (Hospitalization, Other)
  Sender: FDA-Public Use
  Company Number: TR-002147023-NVSC2023TR212142

PATIENT
  Age: 21 Year
  Sex: Female

DRUGS (2)
  1. ILARIS [Suspect]
     Active Substance: CANAKINUMAB
     Indication: Familial mediterranean fever
     Dosage: UNK, QMO
     Route: 065
     Dates: start: 201704
  2. ILARIS [Suspect]
     Active Substance: CANAKINUMAB
     Dosage: UNK
     Route: 065
     Dates: start: 20230827

REACTIONS (8)
  - Familial mediterranean fever [Unknown]
  - Heavy menstrual bleeding [Unknown]
  - Dysmenorrhoea [Unknown]
  - Wound haemorrhage [Recovered/Resolved]
  - Wound [Unknown]
  - Road traffic accident [Unknown]
  - Activated partial thromboplastin time prolonged [Unknown]
  - Off label use [Unknown]
